FAERS Safety Report 14292894 (Version 1)
Quarter: 2017Q4

REPORT INFORMATION
  Report Type: Report from Study
  Country: US (occurrence: US)
  Receive Date: 20171216
  Receipt Date: 20171216
  Transmission Date: 20180321
  Serious: No
  Sender: FDA-Public Use
  Company Number: PHEH2017US040698

PATIENT
  Sex: Female

DRUGS (2)
  1. ILARIS [Suspect]
     Active Substance: CANAKINUMAB
     Dosage: UNK EVERY 3 WEEKS
     Route: 065
     Dates: start: 20171102
  2. ILARIS [Suspect]
     Active Substance: CANAKINUMAB
     Dosage: UNK EVERY 3 WEEKS
     Route: 065
     Dates: start: 20171126

REACTIONS (1)
  - Inappropriate schedule of drug administration [Unknown]
